FAERS Safety Report 9384685 (Version 1)
Quarter: 2013Q3

REPORT INFORMATION
  Report Type: Spontaneous
  Country: US (occurrence: US)
  Receive Date: 20130705
  Receipt Date: 20130705
  Transmission Date: 20140515
  Serious: No
  Sender: FDA-Public Use
  Company Number: US-BAYER-2013-081561

PATIENT
  Age: 82 Year
  Sex: Female
  Weight: 66.67 kg

DRUGS (2)
  1. ALEVE LIQUID GELS [Suspect]
     Indication: ANALGESIC THERAPY
     Dosage: 1 DF, ONCE
     Route: 048
     Dates: start: 20130625, end: 20130625
  2. ALEVE TABLET [Suspect]
     Indication: ANALGESIC THERAPY
     Dosage: 1 DF, ONCE
     Route: 048
     Dates: start: 2013, end: 2013

REACTIONS (2)
  - Drug ineffective [None]
  - Drug ineffective [None]
